FAERS Safety Report 17541910 (Version 1)
Quarter: 2020Q1

REPORT INFORMATION
  Report Type: Report from Study
  Country: US (occurrence: US)
  Receive Date: 20200314
  Receipt Date: 20200314
  Transmission Date: 20200409
  Serious: Yes (Other)
  Sender: FDA-Public Use
  Company Number: US-ROCHE-2567106

PATIENT
  Age: 64 Year
  Sex: Female
  Weight: 76.27 kg

DRUGS (1)
  1. OCREVUS [Suspect]
     Active Substance: OCRELIZUMAB
     Indication: RELAPSING-REMITTING MULTIPLE SCLEROSIS
     Dosage: 18/MAR/2019, 01/APR/2019, 18/SEP/2019
     Route: 042
     Dates: start: 201812

REACTIONS (3)
  - Vision blurred [Recovered/Resolved]
  - Herpes zoster [Recovered/Resolved]
  - Vertigo [Recovered/Resolved]

NARRATIVE: CASE EVENT DATE: 202001
